FAERS Safety Report 6883895-1 (Version None)
Quarter: 2010Q3

REPORT INFORMATION
  Report Type: 
  Country: None (occurrence: None)
  Receive Date: 20100729
  Receipt Date: 20100713
  Transmission Date: 20110219
  Serious: No
  Sender: FDA-Public Use
  Company Number: US-B.I. PHARMACEUTICALS,INC./RIDGEFIELD-2010-BP-07951BP

PATIENT
  Sex: Female

DRUGS (3)
  1. AGGRENOX [Suspect]
     Indication: TRANSIENT ISCHAEMIC ATTACK
     Route: 048
     Dates: start: 20100713, end: 20100713
  2. MEDICATION NOT FURTHER SPECIFIED [Concomitant]
     Indication: HYPERTENSION
  3. MEDICATION NOT FURTHER SPECIFIED [Concomitant]
     Indication: CARDIAC DISORDER

REACTIONS (4)
  - BACK PAIN [None]
  - CHEST PAIN [None]
  - NECK PAIN [None]
  - PAIN IN EXTREMITY [None]
